FAERS Safety Report 14718531 (Version 1)
Quarter: 2018Q2

REPORT INFORMATION
  Report Type: Spontaneous
  Country: CA (occurrence: CA)
  Receive Date: 20180404
  Receipt Date: 20180404
  Transmission Date: 20180711
  Serious: Yes (Life-Threatening, Hospitalization)
  Sender: FDA-Public Use
  Company Number: CA-TEVA-2018-CA-875797

PATIENT
  Age: 10 Year
  Sex: Female
  Weight: 30 kg

DRUGS (3)
  1. FENTANYL. [Suspect]
     Active Substance: FENTANYL
     Indication: ANAESTHESIA
     Dosage: FREQUENCY: ONCE
     Route: 042
  2. ROCURONIUM [Suspect]
     Active Substance: ROCURONIUM BROMIDE
     Indication: ANAESTHESIA
     Dosage: FREQUENCY: ONCE
     Route: 042
  3. PROPOFOL INJECTION [Concomitant]
     Active Substance: PROPOFOL

REACTIONS (5)
  - Anaphylactic reaction [Unknown]
  - Flushing [Unknown]
  - Hypotension [Unknown]
  - Endotracheal intubation [Unknown]
  - Wheezing [Unknown]
